FAERS Safety Report 7073020-9 (Version None)
Quarter: 2010Q4

REPORT INFORMATION
  Report Type: 
  Country: None (occurrence: None)
  Receive Date: 20101029
  Receipt Date: 20100412
  Transmission Date: 20110411
  Serious: No
  Sender: FDA-Public Use
  Company Number: A0854609A

PATIENT
  Age: 41 Year
  Sex: Male

DRUGS (4)
  1. ADVAIR DISKUS 100/50 [Suspect]
     Dosage: 1PUFF TWICE PER DAY
     Route: 055
     Dates: start: 20100406, end: 20100408
  2. TESSALON [Concomitant]
  3. SINGULAIR [Concomitant]
  4. PREVACID [Concomitant]

REACTIONS (4)
  - COLD SWEAT [None]
  - FEELING ABNORMAL [None]
  - HYPERSENSITIVITY [None]
  - PYREXIA [None]
